FAERS Safety Report 12627006 (Version 1)
Quarter: 2016Q3

REPORT INFORMATION
  Report Type: Spontaneous
  Country: TN (occurrence: TN)
  Receive Date: 20160805
  Receipt Date: 20160805
  Transmission Date: 20161109
  Serious: Yes (Hospitalization)
  Sender: FDA-Public Use
  Company Number: TN-MYLANLABS-2016M1031786

PATIENT

DRUGS (2)
  1. TERBUTALINE [Suspect]
     Active Substance: TERBUTALINE
     Indication: ASTHMA
     Dosage: ADMINISTERED BY METERED-DOSE INHALER AND NEBULISER SOLUTION
     Route: 055
  2. SALBUTAMOL [Suspect]
     Active Substance: ALBUTEROL
     Indication: ASTHMA
     Dosage: 400MCG ADMINISTERED BY METERED-DOSE INHALER AND NEBULISER SOLUTION
     Route: 055

REACTIONS (1)
  - Respiratory failure [Unknown]
